FAERS Safety Report 7002402-6 (Version None)
Quarter: 2010Q3

REPORT INFORMATION
  Report Type: 
  Country: None (occurrence: None)
  Receive Date: 20100920
  Receipt Date: 20090805
  Transmission Date: 20110219
  Serious: No
  Sender: FDA-Public Use
  Company Number: US-ASTRAZENECA-2009UW14128

PATIENT
  Age: 38 Year
  Sex: Male
  Weight: 111.6 kg

DRUGS (2)
  1. SEROQUEL XR [Suspect]
     Indication: TRAUMATIC BRAIN INJURY
     Route: 048
     Dates: end: 20090610
  2. SEROQUEL XR [Suspect]
     Indication: AFFECTIVE DISORDER
     Route: 048
     Dates: end: 20090610

REACTIONS (1)
  - SLEEP-RELATED EATING DISORDER [None]
